FAERS Safety Report 7973435-8 (Version None)
Quarter: 2011Q4

REPORT INFORMATION
  Report Type: 
  Country: None (occurrence: None)
  Receive Date: 20111213
  Receipt Date: 20111208
  Transmission Date: 20120403
  Serious: Yes (Life-Threatening, Disabling)
  Sender: FDA-Public Use
  Company Number: JP-ABBOTT-01P-087-0114485-00

PATIENT
  Sex: Male

DRUGS (27)
  1. STAVUDINE [Suspect]
     Indication: HIV INFECTION
     Route: 048
     Dates: start: 20010401, end: 20011020
  2. RIBAVIRIN [Concomitant]
  3. ISENTRESS [Concomitant]
     Indication: HIV INFECTION
     Route: 048
     Dates: start: 20080920
  4. AMLODIPINE BESYLATE [Concomitant]
     Indication: HYPERTENSION
     Dates: start: 20081031, end: 20090105
  5. LAMIVUDINE [Suspect]
     Indication: HIV INFECTION
     Route: 048
     Dates: start: 20040515, end: 20080919
  6. SAQUINAVIR [Suspect]
     Indication: HIV INFECTION
     Route: 048
     Dates: start: 19990619, end: 20000318
  7. NORVIR [Suspect]
     Route: 048
     Dates: start: 20040425, end: 20080919
  8. EFAVIRENZ [Suspect]
     Indication: HIV INFECTION
     Route: 048
     Dates: start: 20000724, end: 20000725
  9. COAGULATION FACTOR VIII [Concomitant]
     Route: 048
     Dates: start: 20010401
  10. LEXIVA [Concomitant]
     Indication: HIV INFECTION
     Route: 048
     Dates: start: 20080920
  11. OLMESARTAN MEDOXOMIL [Concomitant]
     Indication: HYPERTENSION
     Dates: start: 20081031
  12. NORVIR [Suspect]
     Indication: HIV INFECTION
     Route: 048
     Dates: start: 19990619, end: 20001224
  13. INDINIVIR SULFATE [Suspect]
     Indication: HIV INFECTION
     Dates: start: 20000308, end: 20000524
  14. PEGINTERFERON ALFA-2B [Suspect]
     Indication: HEPATITIS C
     Dates: start: 20020817, end: 20030712
  15. DIDANOSINE [Suspect]
     Route: 048
     Dates: start: 20010721, end: 20040514
  16. TENOFOVIR [Concomitant]
     Indication: HIV INFECTION
     Route: 048
     Dates: start: 20040425, end: 20080919
  17. ABACAVIR SULFATE [Suspect]
     Indication: HIV INFECTION
     Route: 048
     Dates: start: 20000724, end: 20000725
  18. ABACAVIR SULFATE [Suspect]
     Route: 048
     Dates: start: 20011020, end: 20011027
  19. EFAVIRENZ [Suspect]
     Route: 048
     Dates: start: 20000925, end: 20001002
  20. DIDANOSINE [Suspect]
     Indication: HIV INFECTION
     Route: 048
     Dates: start: 19941119, end: 20010721
  21. COAGULATION FACTOR VIII [Concomitant]
     Indication: HAEMORRHAGE
     Dosage: 9-10 KU/MONTH
     Dates: start: 19991101
  22. RIBAVIRIN [Concomitant]
     Indication: HEPATITIS C
     Route: 048
     Dates: start: 20020717, end: 20030712
  23. ATAZANAVIR [Concomitant]
     Indication: HIV INFECTION
     Route: 048
     Dates: start: 20040425, end: 20080919
  24. KALETRA [Suspect]
     Indication: HIV INFECTION
     Route: 048
     Dates: end: 20040424
  25. NORVIR [Suspect]
     Route: 048
     Dates: start: 20080920
  26. SAQUINAVIR [Suspect]
     Route: 048
     Dates: start: 20000524, end: 20001224
  27. TRUVADA [Concomitant]
     Indication: HIV INFECTION
     Route: 048
     Dates: start: 20080920

REACTIONS (10)
  - PALPITATIONS [None]
  - NERVOUS SYSTEM DISORDER [None]
  - DIZZINESS [None]
  - INFLUENZA LIKE ILLNESS [None]
  - HEPATIC FUNCTION ABNORMAL [None]
  - TREMOR [None]
  - FIBRIN DEGRADATION PRODUCTS INCREASED [None]
  - VISUAL IMPAIRMENT [None]
  - PULMONARY HYPERTENSION [None]
  - NAUSEA [None]
